FAERS Safety Report 9523237 (Version 1)
Quarter: 2013Q3

REPORT INFORMATION
  Report Type: Spontaneous
  Country: FR (occurrence: FR)
  Receive Date: 20130913
  Receipt Date: 20130913
  Transmission Date: 20140515
  Serious: Yes (Other)
  Sender: FDA-Public Use
  Company Number: PHHY2013FR101126

PATIENT
  Age: 83 Year
  Sex: Female

DRUGS (9)
  1. ACLASTA [Suspect]
     Indication: OSTEITIS DEFORMANS
     Dosage: 5 MG
     Route: 042
     Dates: start: 20070825
  2. CACIT VITAMIN D3 [Suspect]
     Dosage: UNK
     Dates: start: 20070821, end: 20070910
  3. CRESTOR [Suspect]
     Dosage: 5 MG, DAILY
     Dates: start: 20070630, end: 20071001
  4. CALTRATE VITAMINE D3 [Concomitant]
     Dosage: UNK
     Route: 048
     Dates: start: 20070910
  5. TOCOPHEROL [Concomitant]
     Dosage: UNK
     Route: 048
     Dates: start: 20070910
  6. LEVOTHYROX [Concomitant]
     Dosage: UNK
  7. DAFALGAN [Concomitant]
     Dosage: UNK
  8. MAGNE B6 [Concomitant]
     Dosage: UNK
  9. SPASFON [Concomitant]

REACTIONS (1)
  - Chest X-ray abnormal [Recovering/Resolving]
